FAERS Safety Report 7450801-0 (Version None)
Quarter: 2011Q2

REPORT INFORMATION
  Report Type: 
  Country: None (occurrence: None)
  Receive Date: 20110502
  Receipt Date: 20110426
  Transmission Date: 20111010
  Serious: Yes (Hospitalization)
  Sender: FDA-Public Use
  Company Number: FR-PFIZER INC-2011090210

PATIENT
  Age: 80 Year
  Sex: Male

DRUGS (17)
  1. ADANCOR [Concomitant]
     Dosage: 1 DF, 2X/DAY
     Route: 048
     Dates: end: 20100523
  2. ADANCOR [Concomitant]
     Dosage: UNK
     Dates: start: 20100526, end: 20100527
  3. ATENOLOL [Concomitant]
     Dosage: 25 MG, 1X/DAY
     Route: 048
     Dates: end: 20100523
  4. INIPOMP [Concomitant]
     Dosage: 20 MG, 1X/DAY
     Route: 048
  5. FUMAFER [Concomitant]
     Dosage: 66 MG, 2X/DAY
     Route: 048
  6. XYZAL [Concomitant]
     Dosage: 5 MG, 1X/DAY
     Route: 048
  7. RAMIPRIL [Suspect]
     Dosage: 5 MG, 1X/DAY
     Route: 048
     Dates: end: 20100523
  8. DISCOTRINE [Suspect]
     Dosage: 1 DF, 1X/DAY
     Route: 062
     Dates: end: 20100523
  9. PREVISCAN [Concomitant]
     Dosage: 5 MG, 1X/DAY
     Route: 048
  10. ACETAMINOPHEN [Concomitant]
     Dosage: 1000 MG, 3X/DAY
     Route: 048
  11. TAHOR [Suspect]
     Dosage: 40 MG, 1X/DAY
     Route: 048
     Dates: end: 20100525
  12. ATENOLOL [Concomitant]
     Dosage: UNK
     Dates: start: 20100526, end: 20100527
  13. SPECIAFOLDINE [Concomitant]
     Dosage: 5 MG, 2X/DAY
     Route: 048
  14. EXELON [Concomitant]
     Dosage: 0.5 DF, 1X/DAY
     Route: 062
     Dates: end: 20100527
  15. CORDARONE [Concomitant]
     Dosage: 200 MG, 1X/DAY
     Route: 048
  16. ATENOLOL [Concomitant]
     Dosage: UNK
     Dates: start: 20100602, end: 20100614
  17. LYRICA [Concomitant]
     Dosage: 300 MG, 2X/DAY
     Route: 048

REACTIONS (8)
  - ASTHENIA [None]
  - WEIGHT DECREASED [None]
  - PYREXIA [None]
  - CYTOLYTIC HEPATITIS [None]
  - RESPIRATORY DISORDER [None]
  - FALL [None]
  - GENERAL PHYSICAL HEALTH DETERIORATION [None]
  - DECREASED APPETITE [None]
